FAERS Safety Report 14407380 (Version 2)
Quarter: 2019Q4

REPORT INFORMATION
  Report Type: Report from Study
  Country: US (occurrence: US)
  Receive Date: 20180118
  Receipt Date: 20191231
  Transmission Date: 20200122
  Serious: No
  Sender: FDA-Public Use
  Company Number: US-ROCHE-2053887

PATIENT
  Age: 57 Year
  Sex: Female

DRUGS (10)
  1. OCREVUS [Suspect]
     Active Substance: OCRELIZUMAB
     Indication: RELAPSING-REMITTING MULTIPLE SCLEROSIS
     Route: 042
     Dates: start: 20171031
  2. GLUTAMINE [Concomitant]
     Active Substance: GLUTAMINE
     Route: 048
  3. SUCRALFATE. [Concomitant]
     Active Substance: SUCRALFATE
     Dosage: 10 ML BEFORE MEAL AND BEDTIME
     Route: 065
  4. CYANOCOBALAMINE [Concomitant]
     Active Substance: CYANOCOBALAMIN
     Route: 048
  5. OCREVUS [Suspect]
     Active Substance: OCRELIZUMAB
     Route: 065
     Dates: start: 20171114
  6. RECLAST [Concomitant]
     Active Substance: ZOLEDRONIC ACID
     Indication: OSTEOPOROSIS
     Route: 065
     Dates: start: 20160418
  7. MAGNESIUM [Concomitant]
     Active Substance: MAGNESIUM
     Route: 048
  8. CALCIUM CARBONATE. [Concomitant]
     Active Substance: CALCIUM CARBONATE
     Route: 048
  9. CETRIZINE [Concomitant]
     Active Substance: CETIRIZINE HYDROCHLORIDE
     Dosage: 10 MG TAB BY MOUTH DAILY
     Route: 048
  10. PROBIOTICA [Concomitant]
     Active Substance: PROBIOTICS NOS
     Route: 048

REACTIONS (11)
  - Chest pain [Unknown]
  - Rhinorrhoea [Unknown]
  - Productive cough [Unknown]
  - Erythema [Not Recovered/Not Resolved]
  - Cough [Unknown]
  - Skin exfoliation [Not Recovered/Not Resolved]
  - Eye inflammation [Recovered/Resolved]
  - Ear infection [Not Recovered/Not Resolved]
  - Painful respiration [Unknown]
  - Throat irritation [Unknown]
  - Eye swelling [Not Recovered/Not Resolved]

NARRATIVE: CASE EVENT DATE: 201712
